FAERS Safety Report 5500771-7 (Version None)
Quarter: 2007Q4

REPORT INFORMATION
  Report Type: 
  Country: None (occurrence: None)
  Receive Date: 20071029
  Receipt Date: 20071026
  Transmission Date: 20080405
  Serious: Yes (Hospitalization)
  Sender: FDA-Public Use
  Company Number: US-BRISTOL-MYERS SQUIBB COMPANY-13958418

PATIENT
  Age: 49 Year
  Sex: Male
  Weight: 98 kg

DRUGS (1)
  1. CISPLATIN [Suspect]
     Indication: NEOPLASM MALIGNANT
     Dosage: 100MG/M2 PER 3 WEEKS X 2
     Route: 042
     Dates: start: 20071008, end: 20071008

REACTIONS (2)
  - CONSTIPATION [None]
  - PYREXIA [None]
